FAERS Safety Report 6978151-7 (Version None)
Quarter: 2010Q3

REPORT INFORMATION
  Report Type: 
  Country: None (occurrence: None)
  Receive Date: 20100913
  Receipt Date: 20100830
  Transmission Date: 20110219
  Serious: Yes (Hospitalization, Other)
  Sender: FDA-Public Use
  Company Number: US-BAYER-201024611NA

PATIENT
  Age: 32 Year
  Sex: Female
  Weight: 70 kg

DRUGS (7)
  1. YAZ [Suspect]
     Indication: ACNE
     Route: 048
     Dates: start: 20071201
  2. ASPIRIN [Concomitant]
     Dosage: UNIT DOSE: 325 MG
     Route: 048
  3. ALPRAZOLAM [Concomitant]
     Route: 048
  4. M.V.I. [Concomitant]
  5. SOTRET [Concomitant]
  6. TOPAMAX [Concomitant]
     Dosage: DAILY
     Route: 048
  7. ZOLPIDEM [Concomitant]

REACTIONS (11)
  - BLINDNESS [None]
  - CEREBROVASCULAR ACCIDENT [None]
  - DIPLOPIA [None]
  - HEARING IMPAIRED [None]
  - HEMIANOPIA HOMONYMOUS [None]
  - HEMIPARESIS [None]
  - PAIN [None]
  - SPEECH DISORDER [None]
  - TRANSIENT ISCHAEMIC ATTACK [None]
  - VAGINAL HAEMORRHAGE [None]
  - VIITH NERVE PARALYSIS [None]
